FAERS Safety Report 24789004 (Version 1)
Quarter: 2024Q4

REPORT INFORMATION
  Report Type: Spontaneous
  Country: CN (occurrence: CN)
  Receive Date: 20241230
  Receipt Date: 20241230
  Transmission Date: 20250115
  Serious: Yes (Other)
  Sender: GE HEALTHCARE
  Company Number: CN-GE HEALTHCARE-2024CSU014826

PATIENT
  Age: 34 Year
  Sex: Female
  Weight: 70 kg

DRUGS (1)
  1. OMNIPAQUE [Suspect]
     Active Substance: IOHEXOL
     Indication: Computerised tomogram
     Dosage: 100 ML, TOTAL
     Route: 041
     Dates: start: 20241213, end: 20241213

REACTIONS (4)
  - Dysphonia [Recovering/Resolving]
  - Chest discomfort [Recovering/Resolving]
  - Pruritus [Recovering/Resolving]
  - Contrast media allergy [Recovering/Resolving]

NARRATIVE: CASE EVENT DATE: 20241213
